FAERS Safety Report 6093887-0 (Version None)
Quarter: 2009Q1

REPORT INFORMATION
  Report Type: 
  Country: None (occurrence: None)
  Receive Date: 20090224
  Receipt Date: 20090224
  Transmission Date: 20090719
  Serious: Yes (Other)
  Sender: FDA-Public Use
  Company Number: None

PATIENT
  Sex: Female

DRUGS (1)
  1. PENICILLIN VK [Suspect]
     Indication: ORAL SURGERY
     Dosage: 1 TAB QID X10 PO
     Route: 048
     Dates: start: 20090212, end: 20090214

REACTIONS (4)
  - BALANCE DISORDER [None]
  - DIZZINESS [None]
  - NAUSEA [None]
  - TREMOR [None]
